FAERS Safety Report 12808308 (Version 2)
Quarter: 2016Q4

REPORT INFORMATION
  Report Type: Spontaneous
  Country: US (occurrence: US)
  Receive Date: 20161004
  Receipt Date: 20161017
  Transmission Date: 20170207
  Serious: Yes (Other)
  Sender: FDA-Public Use
  Company Number: US-BAYER-2016-187462

PATIENT
  Age: 89 Year
  Sex: Female
  Weight: 43 kg

DRUGS (3)
  1. MIRALAX [Suspect]
     Active Substance: POLYETHYLENE GLYCOL 3350
     Indication: GASTROINTESTINAL DISORDER
     Dosage: UNK, IRR
     Dates: start: 201412
  2. AMLODIPINE [Concomitant]
     Active Substance: AMLODIPINE BESYLATE
     Dosage: UNK
  3. MIRALAX [Suspect]
     Active Substance: POLYETHYLENE GLYCOL 3350
     Indication: GASTROINTESTINAL DISORDER
     Dosage: UNK UNK, QD - TAKING MIRALAX. SLIGHTLY LESS THAN A FULL DOSE
     Route: 048
     Dates: start: 2016, end: 20160925

REACTIONS (7)
  - Dyspnoea [Recovered/Resolved with Sequelae]
  - Malaise [Not Recovered/Not Resolved]
  - Product use issue [Unknown]
  - Product use issue [Unknown]
  - Abdominal distension [Not Recovered/Not Resolved]
  - Underdose [Unknown]
  - Weight decreased [Not Recovered/Not Resolved]

NARRATIVE: CASE EVENT DATE: 2014
